FAERS Safety Report 5476352-0 (Version None)
Quarter: 2007Q3

REPORT INFORMATION
  Report Type: 
  Country: None (occurrence: None)
  Receive Date: 20070914
  Receipt Date: 20070625
  Transmission Date: 20080115
  Serious: Yes (Other)
  Sender: FDA-Public Use
  Company Number: 07-177

PATIENT
  Sex: Female
  Weight: 49.8957 kg

DRUGS (4)
  1. ALEVE [Suspect]
     Indication: MUSCULOSKELETAL PAIN
     Dosage: 440 MG, DAILY, ORAL
     Route: 048
     Dates: start: 20070617
  2. TUMS [Suspect]
     Indication: PROPHYLAXIS
     Dates: start: 20070617
  3. TUMS [Suspect]
     Indication: STOMACH DISCOMFORT
     Dates: start: 20070617
  4. FOSAMAX [Suspect]
     Dates: end: 20070701

REACTIONS (3)
  - ABDOMINAL PAIN UPPER [None]
  - DRUG INEFFECTIVE [None]
  - HAEMORRHAGE [None]
